FAERS Safety Report 6545706-3 (Version None)
Quarter: 2010Q1

REPORT INFORMATION
  Report Type: 
  Country: None (occurrence: None)
  Receive Date: 20100121
  Receipt Date: 20100112
  Transmission Date: 20100710
  Serious: Yes (Hospitalization, Other)
  Sender: FDA-Public Use
  Company Number: PHHY2008CA14051

PATIENT
  Sex: Male
  Weight: 64.399 kg

DRUGS (1)
  1. SANDOSTATIN LAR [Suspect]
     Indication: DYSPHAGIA
     Dosage: 20 MG, EVERY 4 WEEKS
     Route: 030
     Dates: start: 20051107, end: 20090930

REACTIONS (15)
  - ABDOMINAL DISTENSION [None]
  - BLOOD PRESSURE DECREASED [None]
  - DECUBITUS ULCER [None]
  - DYSPNOEA [None]
  - FLUID RETENTION [None]
  - GASTROINTESTINAL TUBE INSERTION [None]
  - MECHANICAL VENTILATION [None]
  - PERITONITIS [None]
  - PNEUMONIA ASPIRATION [None]
  - PULMONARY OEDEMA [None]
  - SECRETION DISCHARGE [None]
  - SURGERY [None]
  - TRACHEOSTOMY [None]
  - URINARY INCONTINENCE [None]
  - WEIGHT INCREASED [None]
